FAERS Safety Report 9019022 (Version 1)
Quarter: 2013Q1

REPORT INFORMATION
  Report Type: Spontaneous
  Country: US (occurrence: US)
  Receive Date: 20130118
  Receipt Date: 20130118
  Transmission Date: 20140127
  Serious: Yes (Death)
  Sender: FDA-Public Use
  Company Number: US-ABBOTT-13P-163-1036995-00

PATIENT
  Sex: 0

DRUGS (6)
  1. ACETAMINOPHEN\HYDROCODONE [Suspect]
     Indication: PRODUCT USED FOR UNKNOWN INDICATION
  2. ACETAMINOPHEN\HYDROCODONE [Suspect]
  3. FENTANYL [Suspect]
     Indication: PRODUCT USED FOR UNKNOWN INDICATION
  4. FENTANYL [Suspect]
  5. DIAZEPAM [Suspect]
     Indication: PRODUCT USED FOR UNKNOWN INDICATION
  6. DIAZEPAM [Suspect]

REACTIONS (2)
  - Death [Fatal]
  - Cardio-respiratory arrest [Fatal]
